FAERS Safety Report 9437918 (Version 1)
Quarter: 2013Q3

REPORT INFORMATION
  Report Type: Spontaneous
  Country: US (occurrence: US)
  Receive Date: 20130802
  Receipt Date: 20130802
  Transmission Date: 20140515
  Serious: Yes (Life-Threatening, Hospitalization, Other)
  Sender: FDA-Public Use
  Company Number: US-BRISTOL-MYERS SQUIBB COMPANY-18885673

PATIENT
  Age: 59 Year
  Sex: Female

DRUGS (13)
  1. COUMADIN [Suspect]
     Dosage: INCR TO 7.5 MG THRICE IN WEEK
     Route: 065
     Dates: start: 201007
  2. ASPIRIN [Suspect]
     Dates: start: 200205
  3. INSULIN [Concomitant]
     Dosage: 26IU-2IN1D?INSULIN 50/50-32-UNITS NOS FROM 28MAR11-UNK
     Dates: start: 2005, end: 20110328
  4. NICOTINIC ACID [Concomitant]
     Dates: start: 200505
  5. ROSUVASTATIN [Concomitant]
     Dates: start: 200505, end: 201104
  6. AMIODARONE [Concomitant]
     Dates: start: 201109
  7. DRONEDARONE [Concomitant]
     Dates: start: 201102, end: 201109
  8. LIPITOR [Concomitant]
     Dates: start: 201104
  9. FUROSEMIDE [Concomitant]
     Dosage: MAY02-17FEB11-8YRS?17FEB11-UNK
     Dates: start: 200205
  10. POTASSIUM CHLORIDE [Concomitant]
     Dates: start: 201007
  11. PANTOPRAZOLE [Concomitant]
     Dates: start: 200801
  12. METOPROLOL TARTRATE [Concomitant]
     Dates: start: 200205
  13. CITALOPRAM [Concomitant]
     Dates: start: 200811

REACTIONS (2)
  - Lower gastrointestinal haemorrhage [Recovered/Resolved]
  - Haemoglobin decreased [Unknown]
